FAERS Safety Report 8920541 (Version 7)
Quarter: 2018Q2

REPORT INFORMATION
  Report Type: Spontaneous
  Country: US (occurrence: US)
  Receive Date: 20121121
  Receipt Date: 20180618
  Transmission Date: 20180711
  Serious: Yes (Hospitalization, Disabling, Other)
  Sender: FDA-Public Use
  Company Number: US-009507513-1211USA008132

PATIENT
  Sex: Female
  Weight: 64.85 kg

DRUGS (8)
  1. FOSAMAX [Suspect]
     Active Substance: ALENDRONATE SODIUM
     Indication: OSTEOPOROSIS
  2. FOSAMAX [Suspect]
     Active Substance: ALENDRONATE SODIUM
     Indication: OSTEOPENIA
     Dosage: UNK, QW
     Route: 048
     Dates: end: 200704
  3. FOSAMAX [Suspect]
     Active Substance: ALENDRONATE SODIUM
     Indication: OSTEOPOROSIS
  4. LORAZEPAM. [Concomitant]
     Active Substance: LORAZEPAM
     Indication: ANXIETY
     Dosage: 0.5 MG BID PRN
     Dates: start: 1970
  5. FOSAMAX [Suspect]
     Active Substance: ALENDRONATE SODIUM
     Indication: OSTEOPENIA
     Dosage: 10 MG, UNK
     Route: 048
     Dates: start: 1998, end: 200704
  6. MIACALCIN [Concomitant]
     Active Substance: CALCITONIN SALMON
     Indication: OSTEOPENIA
     Dosage: 1 SRAY QD
     Route: 065
     Dates: start: 1997
  7. VITAMINS (UNSPECIFIED) [Concomitant]
     Active Substance: VITAMINS
     Dosage: 1 DAILY
     Route: 048
     Dates: start: 1972
  8. CALCIUM (UNSPECIFIED) [Concomitant]
     Active Substance: CALCIUM
     Dosage: 1200 MG, UNK
     Route: 048
     Dates: start: 1992

REACTIONS (31)
  - Essential hypertension [Unknown]
  - Ureteric obstruction [Unknown]
  - Aortic arteriosclerosis [Unknown]
  - Weight decreased [Unknown]
  - Oedema [Unknown]
  - Body height decreased [Unknown]
  - Squamous cell carcinoma of the oral cavity [Unknown]
  - Scoliosis [Unknown]
  - Renal artery stenosis [Unknown]
  - Chronic obstructive pulmonary disease [Unknown]
  - Osteoporosis [Unknown]
  - Multiple fractures [Unknown]
  - Cataract [Unknown]
  - Arthropathy [Unknown]
  - Arthropathy [Unknown]
  - Intervertebral disc degeneration [Unknown]
  - Femur fracture [Unknown]
  - Constipation [Unknown]
  - Arthritis [Unknown]
  - Migraine [Unknown]
  - Bone density decreased [Unknown]
  - Anxiety [Unknown]
  - Femur fracture [Recovering/Resolving]
  - Kidney small [Unknown]
  - Fatigue [Recovered/Resolved]
  - Foot fracture [Unknown]
  - Fall [Unknown]
  - Device failure [Unknown]
  - Forearm fracture [Unknown]
  - Wheezing [Unknown]
  - Back pain [Recovered/Resolved]

NARRATIVE: CASE EVENT DATE: 19970103
